FAERS Safety Report 4285386-3 (Version None)
Quarter: 2004Q1

REPORT INFORMATION
  Report Type: 
  Country: None (occurrence: None)
  Receive Date: 20040202
  Receipt Date: 20040122
  Transmission Date: 20041129
  Serious: Yes (Other)
  Sender: FDA-Public Use
  Company Number: AUS063493

PATIENT
  Sex: Female

DRUGS (2)
  1. ARANESP [Suspect]
     Indication: RENAL FAILURE CHRONIC
     Dosage: SC
     Route: 058
  2. MYCOPHENOLATE MOFETIL [Concomitant]

REACTIONS (2)
  - BIOPSY BONE MARROW ABNORMAL [None]
  - HAEMOGLOBIN INCREASED [None]
